FAERS Safety Report 17856276 (Version 4)
Quarter: 2020Q4

REPORT INFORMATION
  Report Type: Spontaneous
  Country: NL (occurrence: FR)
  Receive Date: 20200603
  Receipt Date: 20201006
  Transmission Date: 20210113
  Serious: Yes (Hospitalization)
  Sender: FDA-Public Use
  Company Number: FR-FRESENIUS KABI-FK202005444

PATIENT
  Age: 68 Year
  Sex: Male

DRUGS (6)
  1. CISPLATIN. [Suspect]
     Active Substance: CISPLATIN
     Indication: PRODUCT USED FOR UNKNOWN INDICATION
     Route: 065
     Dates: start: 20200408, end: 20200408
  2. AVELUMAB [Suspect]
     Active Substance: AVELUMAB
     Dosage: REGIMEN: 2
     Route: 065
     Dates: start: 20200429, end: 20200429
  3. GEMCITABINE. [Suspect]
     Active Substance: GEMCITABINE
     Indication: PRODUCT USED FOR UNKNOWN INDICATION
     Route: 065
     Dates: start: 20200408, end: 20200408
  4. GEMCITABINE. [Suspect]
     Active Substance: GEMCITABINE
     Dosage: REGIMEN: 2
     Route: 065
     Dates: start: 20200429, end: 20200429
  5. CISPLATIN. [Suspect]
     Active Substance: CISPLATIN
     Dosage: REGIMEN: 2
     Route: 065
     Dates: start: 20200429, end: 20200429
  6. AVELUMAB [Suspect]
     Active Substance: AVELUMAB
     Indication: PRODUCT USED FOR UNKNOWN INDICATION
     Route: 065
     Dates: start: 20200408, end: 20200408

REACTIONS (1)
  - Renal failure [Not Recovered/Not Resolved]

NARRATIVE: CASE EVENT DATE: 20200408
